FAERS Safety Report 18755774 (Version 1)
Quarter: 2021Q1

REPORT INFORMATION
  Report Type: Spontaneous
  Country: US (occurrence: US)
  Receive Date: 20210115
  Receipt Date: 20210115
  Transmission Date: 20210419
  Serious: Yes (Life-Threatening)
  Sender: FDA-Public Use
  Company Number: None

PATIENT
  Age: 77 Year
  Sex: Female
  Weight: 104.4 kg

DRUGS (12)
  1. TROSPIUM CHLORIDE ER [Suspect]
     Active Substance: TROSPIUM CHLORIDE
     Indication: CYSTITIS
     Dosage: ?          QUANTITY:30 CAPSULE(S);?
     Route: 048
     Dates: start: 20210112, end: 20210113
  2. MAGNESIUM [Concomitant]
     Active Substance: MAGNESIUM
  3. ELIQUIS [Concomitant]
     Active Substance: APIXABAN
  4. TUMERIC [Concomitant]
     Active Substance: HERBALS\TURMERIC
  5. MULTI?VITAMINS [Concomitant]
  6. TYLENOL [Concomitant]
     Active Substance: ACETAMINOPHEN
  7. GINGER. [Concomitant]
     Active Substance: GINGER
  8. METOPROLOL. [Concomitant]
     Active Substance: METOPROLOL
  9. ESTRADIOL CREAM [Concomitant]
     Active Substance: ESTRADIOL HEMIHYDRATE
  10. C?PAP BREATHING MACHINE [Concomitant]
  11. D?MANNOSE [Concomitant]
  12. COENZYME Q10 [Concomitant]
     Active Substance: DIETARY SUPPLEMENT\UBIDECARENONE

REACTIONS (4)
  - Sensation of foreign body [None]
  - Laryngitis [None]
  - Pharyngeal swelling [None]
  - Oesophageal pain [None]

NARRATIVE: CASE EVENT DATE: 20210113
